FAERS Safety Report 9198497 (Version 5)
Quarter: 2014Q4

REPORT INFORMATION
  Report Type: Spontaneous
  Country: BR (occurrence: BR)
  Receive Date: 20130329
  Receipt Date: 20141114
  Transmission Date: 20150529
  Serious: Yes (Hospitalization, Other)
  Sender: FDA-Public Use
  Company Number: PHHY2011BR92487

PATIENT
  Sex: Male
  Weight: 76 kg

DRUGS (4)
  1. RIVOTRIL [Suspect]
     Active Substance: CLONAZEPAM
     Indication: SEIZURE
     Dosage: 0.25 MG, UNK
     Route: 060
  2. TRILEPTAL [Suspect]
     Active Substance: OXCARBAZEPINE
     Indication: EPILEPSY
     Dosage: 1 DF, Q12H (300 MG)
     Route: 048
     Dates: start: 2004, end: 2007
  3. RIVOTRIL [Suspect]
     Active Substance: CLONAZEPAM
     Dosage: 0.25 MG, UNK
     Route: 060
     Dates: start: 2012
  4. TRILEPTAL [Suspect]
     Active Substance: OXCARBAZEPINE
     Dosage: 1 DF (600 MG), Q12H
     Route: 048
     Dates: start: 2007

REACTIONS (12)
  - Drug dependence [Unknown]
  - Somnolence [Unknown]
  - Movement disorder [Recovered/Resolved]
  - Asthenopia [Unknown]
  - Tachycardia [Unknown]
  - Loss of consciousness [Unknown]
  - Stress [Unknown]
  - Joint injury [Recovered/Resolved with Sequelae]
  - Joint dislocation [Recovered/Resolved with Sequelae]
  - Seizure [Recovered/Resolved]
  - Sleep disorder [Unknown]
  - Mental retardation [Unknown]
